FAERS Safety Report 19900856 (Version 1)
Quarter: 2021Q3

REPORT INFORMATION
  Report Type: Spontaneous
  Country: US (occurrence: US)
  Receive Date: 20210929
  Receipt Date: 20210929
  Transmission Date: 20211014
  Serious: Yes (Death, Life-Threatening)
  Sender: FDA-Public Use
  Company Number: US-NOSTRUM LABORATORIES, INC.-2118963

PATIENT
  Age: 25 Year
  Sex: Male

DRUGS (6)
  1. MORPHINE SULFATE. [Suspect]
     Active Substance: MORPHINE SULFATE
     Indication: ACCIDENTAL OVERDOSE
     Route: 048
  2. CYCLOBENZAPRINE. [Interacting]
     Active Substance: CYCLOBENZAPRINE
     Route: 048
  3. SERTRALINE [Interacting]
     Active Substance: SERTRALINE HYDROCHLORIDE
     Route: 048
  4. CODEINE SULFATE. [Suspect]
     Active Substance: CODEINE SULFATE
     Route: 048
  5. ZOLPIDEM [Interacting]
     Active Substance: ZOLPIDEM TARTRATE
     Route: 048
  6. KRATOM, MITRAZANINE [Concomitant]
     Route: 048

REACTIONS (1)
  - Accidental overdose [Fatal]
